FAERS Safety Report 14821891 (Version 2)
Quarter: 2018Q2

REPORT INFORMATION
  Report Type: Spontaneous
  Country: DE (occurrence: DE)
  Receive Date: 20180427
  Receipt Date: 20180605
  Transmission Date: 20180711
  Serious: Yes (Hospitalization)
  Sender: FDA-Public Use
  Company Number: PHHY2018DE071752

PATIENT
  Sex: Female

DRUGS (1)
  1. TEGRETAL [Suspect]
     Active Substance: CARBAMAZEPINE
     Indication: PRODUCT USED FOR UNKNOWN INDICATION
     Dosage: 400 MG, UNK
     Route: 065
     Dates: start: 201801

REACTIONS (5)
  - Malaise [Unknown]
  - Eating disorder [Unknown]
  - Dysstasia [Unknown]
  - Product quality issue [Unknown]
  - General physical health deterioration [Unknown]
